FAERS Safety Report 9422047 (Version 2)
Quarter: 2014Q1

REPORT INFORMATION
  Report Type: Report from Study
  Country: JP (occurrence: JP)
  Receive Date: 20130726
  Receipt Date: 20140319
  Transmission Date: 20141002
  Serious: Yes (Other)
  Sender: FDA-Public Use
  Company Number: JP-JNJFOC-20130713653

PATIENT
  Age: 54 Year
  Sex: Male
  Weight: 88 kg

DRUGS (6)
  1. STELARA [Suspect]
     Indication: PSORIASIS
     Route: 058
     Dates: start: 20130620
  2. STELARA [Suspect]
     Indication: PSORIASIS
     Route: 058
     Dates: start: 20130330, end: 20130330
  3. STELARA [Suspect]
     Indication: PSORIASIS
     Route: 058
     Dates: start: 20121229, end: 20130329
  4. STELARA [Suspect]
     Indication: PSORIASIS
     Route: 058
     Dates: start: 20121201, end: 20121201
  5. ALESION [Concomitant]
     Indication: PSORIASIS
     Route: 048
  6. ANTEBATE [Concomitant]
     Indication: PSORIASIS
     Route: 061

REACTIONS (1)
  - Cellulitis [Recovered/Resolved]
